FAERS Safety Report 15534521 (Version 3)
Quarter: 2018Q4

REPORT INFORMATION
  Report Type: Report from Study
  Country: US (occurrence: US)
  Receive Date: 20181022
  Receipt Date: 20181221
  Transmission Date: 20190205
  Serious: Yes (Hospitalization)
  Sender: FDA-Public Use
  Company Number: US-BIOGEN-2018BI00646690

PATIENT
  Age: 55 Year
  Sex: Female

DRUGS (1)
  1. TYSABRI [Suspect]
     Active Substance: NATALIZUMAB
     Indication: MULTIPLE SCLEROSIS
     Route: 065
     Dates: start: 20080317

REACTIONS (6)
  - Progressive multiple sclerosis [Unknown]
  - Malaise [Unknown]
  - Insomnia [Unknown]
  - Asthenia [Unknown]
  - Gait disturbance [Unknown]
  - Epilepsy [Recovered/Resolved]

NARRATIVE: CASE EVENT DATE: 20181011
